FAERS Safety Report 4635172-7 (Version None)
Quarter: 2005Q2

REPORT INFORMATION
  Report Type: 
  Country: None (occurrence: None)
  Receive Date: 20050414
  Receipt Date: 20050405
  Transmission Date: 20051028
  Serious: Yes (Other)
  Sender: FDA-Public Use
  Company Number: NL-GLAXOSMITHKLINE-B0377673A

PATIENT
  Sex: Male

DRUGS (8)
  1. ROSIGLITAZONE MALEATE [Suspect]
     Indication: DIABETES MELLITUS NON-INSULIN-DEPENDENT
     Dosage: 4MG UNKNOWN
     Route: 065
  2. ACETYL SALICYLIC ACID USP BAT [Concomitant]
     Indication: ILL-DEFINED DISORDER
     Dosage: 30MG UNKNOWN
     Route: 065
  3. GLIMEPIRIDE [Concomitant]
     Indication: ILL-DEFINED DISORDER
     Dosage: 4MG UNKNOWN
     Route: 065
  4. LOSARTAN POTASSIUM [Concomitant]
     Indication: ILL-DEFINED DISORDER
     Dosage: 50MG UNKNOWN
     Route: 065
  5. FUROSEMIDE [Concomitant]
     Indication: ILL-DEFINED DISORDER
     Dosage: 40MG UNKNOWN
     Route: 065
  6. DIGOXIN [Concomitant]
     Indication: ILL-DEFINED DISORDER
     Dosage: .125MG UNKNOWN
     Route: 065
  7. SOTALOL HCL [Concomitant]
     Indication: ILL-DEFINED DISORDER
     Dosage: 160MG UNKNOWN
     Route: 065
  8. VERAPAMIL HYDROCHLORIDE [Concomitant]
     Indication: ILL-DEFINED DISORDER
     Dosage: 240MG UNKNOWN
     Route: 065

REACTIONS (3)
  - ASCITES [None]
  - DYSPNOEA [None]
  - FLUID RETENTION [None]
